FAERS Safety Report 6458826-9 (Version None)
Quarter: 2009Q4

REPORT INFORMATION
  Report Type: 
  Country: None (occurrence: None)
  Receive Date: 20091123
  Receipt Date: 20091116
  Transmission Date: 20100525
  Serious: Yes (Hospitalization, Disabling)
  Sender: FDA-Public Use
  Company Number: WAES 0909USA02893

PATIENT
  Age: 43 Year
  Sex: Male

DRUGS (10)
  1. ISENTRESS [Suspect]
     Indication: HIV INFECTION
     Dosage: 800 MG DAILY PO
     Route: 048
     Dates: start: 20071013, end: 20081008
  2. EFAVIRENZ [Suspect]
     Indication: HIV INFECTION
     Dosage: 600 MG DAILY PO
     Route: 048
     Dates: start: 20071013, end: 20080925
  3. NORVIR [Suspect]
     Indication: HIV INFECTION
     Dosage: 200 MG DAILY PO
     Route: 048
     Dates: start: 20071013, end: 20081008
  4. TRUVADA [Suspect]
     Indication: HIV INFECTION
     Dosage: 1 DOSE DAILY PO
     Route: 048
     Dates: start: 20070926, end: 20081008
  5. PREZISTA [Suspect]
     Indication: HIV INFECTION
     Dosage: 1200 MG DAILY PO
     Route: 048
     Dates: start: 20071013, end: 20081008
  6. INJ T-20 (EFUVIRTIDE) [Suspect]
     Indication: HIV INFECTION
     Dosage: 90 MG BID SC
     Route: 058
     Dates: start: 20071013, end: 20071110
  7. INJ T-20 (EFUVIRTIDE) [Suspect]
     Indication: HIV INFECTION
     Dosage: 90 MG BID SC
     Route: 058
     Dates: start: 20080507, end: 20080925
  8. DEPAKENE [Concomitant]
  9. LENDORMIN [Concomitant]
  10. RISPERDAL [Concomitant]

REACTIONS (7)
  - AIDS ENCEPHALOPATHY [None]
  - BLOOD HIV RNA INCREASED [None]
  - DRUG INEFFECTIVE [None]
  - FALL [None]
  - SUBDURAL HAEMATOMA [None]
  - TRAUMATIC HAEMATOMA [None]
  - TRAUMATIC HAEMORRHAGE [None]
